FAERS Safety Report 6387025-4 (Version None)
Quarter: 2009Q4

REPORT INFORMATION
  Report Type: 
  Country: None (occurrence: None)
  Receive Date: 20091002
  Receipt Date: 20090924
  Transmission Date: 20100525
  Serious: Yes (Other)
  Sender: FDA-Public Use
  Company Number: BR-JNJFOC-20090908282

PATIENT
  Sex: Male
  Weight: 5 kg

DRUGS (2)
  1. TYLENOL (CAPLET) [Suspect]
     Route: 048
  2. TYLENOL (CAPLET) [Suspect]
     Indication: ABDOMINAL PAIN
     Route: 048

REACTIONS (4)
  - DYSPNOEA [None]
  - LISTLESS [None]
  - MEDICATION ERROR [None]
  - SOMNOLENCE [None]
